FAERS Safety Report 4277696-0 (Version None)
Quarter: 2004Q1

REPORT INFORMATION
  Report Type: 
  Country: None (occurrence: None)
  Receive Date: 20040121
  Receipt Date: 20040107
  Transmission Date: 20041129
  Serious: Yes (Congenital Anomaly)
  Sender: FDA-Public Use
  Company Number: FR_040103374

PATIENT
  Age: 1 Day
  Sex: Female
  Weight: 3720 kg

DRUGS (1)
  1. PROZAC [Suspect]

REACTIONS (3)
  - CONGENITAL FOOT MALFORMATION [None]
  - CONGENITAL HAND MALFORMATION [None]
  - MATERNAL DRUGS AFFECTING FOETUS [None]
